FAERS Safety Report 9079026 (Version 1)
Quarter: 2013Q1

REPORT INFORMATION
  Report Type: Report from Study
  Country: US (occurrence: US)
  Receive Date: 20130130
  Receipt Date: 20130130
  Transmission Date: 20140127
  Serious: No
  Sender: FDA-Public Use
  Company Number: US-ABBOTT-12P-163-0964905-00

PATIENT
  Age: 50 Year
  Sex: Male

DRUGS (2)
  1. HUMIRA 40 MG/0.8 ML PEN [Suspect]
     Indication: PSORIASIS
     Route: 058
  2. PRILOSEC OTC [Concomitant]
     Indication: GASTROOESOPHAGEAL REFLUX DISEASE
     Dosage: DAILY

REACTIONS (2)
  - Cholelithiasis [Not Recovered/Not Resolved]
  - Abdominal pain upper [Recovering/Resolving]
